FAERS Safety Report 4775466-8 (Version None)
Quarter: 2005Q3

REPORT INFORMATION
  Report Type: 
  Country: None (occurrence: None)
  Receive Date: 20050922
  Receipt Date: 20050912
  Transmission Date: 20060218
  Serious: Yes (Other)
  Sender: FDA-Public Use
  Company Number: GB-ABBOTT-05P-167-0310805-00

PATIENT
  Sex: Female

DRUGS (2)
  1. VALPROATE SODIUM [Suspect]
     Indication: DRUG USE FOR UNKNOWN INDICATION
  2. ETANERCEPT [Interacting]
     Indication: RHEUMATOID ARTHRITIS

REACTIONS (3)
  - BILE DUCT STENOSIS [None]
  - DRUG INTERACTION [None]
  - PANCREATITIS [None]
